FAERS Safety Report 15432947 (Version 1)
Quarter: 2018Q3

REPORT INFORMATION
  Report Type: Spontaneous
  Country: BR (occurrence: BR)
  Receive Date: 20180927
  Receipt Date: 20180927
  Transmission Date: 20181010
  Serious: No
  Sender: FDA-Public Use
  Company Number: BR-NOVEN PHARMACEUTICALS, INC.-BR2017001321

PATIENT

DRUGS (1)
  1. ESTRADIOL/NORETHISTERONE ACETATE [Suspect]
     Active Substance: ESTRADIOL\NORETHINDRONE ACETATE
     Indication: HORMONE LEVEL ABNORMAL
     Dosage: 1 DF (EVERY 4 DAYS), UNK
     Route: 062
     Dates: end: 20171027

REACTIONS (5)
  - Dry skin [Unknown]
  - Hypersensitivity [Unknown]
  - Pigmentation disorder [Unknown]
  - Skin irritation [Not Recovered/Not Resolved]
  - Application site pain [Unknown]
